FAERS Safety Report 9250278 (Version 3)
Quarter: 2013Q3

REPORT INFORMATION
  Report Type: Spontaneous
  Country: US (occurrence: US)
  Receive Date: 20130424
  Receipt Date: 20130725
  Transmission Date: 20140515
  Serious: No
  Sender: FDA-Public Use
  Company Number: US-009507513-1304USA014307

PATIENT
  Sex: Male

DRUGS (6)
  1. VICTRELIS [Suspect]
     Indication: HEPATITIS C
     Dosage: UNK
     Dates: start: 20130307
  2. REBETOL [Suspect]
     Indication: HEPATITIS C
     Dosage: 6 DF, QD
     Dates: start: 20130206
  3. REBETOL [Suspect]
     Dosage: 4 DF, QD
  4. REBETOL [Suspect]
     Dosage: 800 MG, QD
  5. REBETOL [Suspect]
     Dosage: 400 MG, QD
  6. PEGASYS [Suspect]
     Indication: HEPATITIS C
     Dosage: UNK
     Dates: start: 20130206, end: 20130530

REACTIONS (11)
  - Pollakiuria [Unknown]
  - Pruritus [Recovering/Resolving]
  - Anaemia [Unknown]
  - Insomnia [Unknown]
  - Fatigue [Unknown]
  - Haemoglobin decreased [Unknown]
  - Anaemia [Unknown]
  - Full blood count decreased [Unknown]
  - Somnolence [Unknown]
  - Fatigue [Unknown]
  - Heart rate increased [Unknown]
